FAERS Safety Report 5245352-8 (Version None)
Quarter: 2007Q1

REPORT INFORMATION
  Report Type: 
  Country: None (occurrence: None)
  Receive Date: 20070223
  Receipt Date: 20070213
  Transmission Date: 20070707
  Serious: Yes (Other)
  Sender: FDA-Public Use
  Company Number: PHBS2006IE19853

PATIENT
  Age: 11 Year
  Sex: Male

DRUGS (2)
  1. SIMULECT [Suspect]
     Indication: LUNG TRANSPLANT
  2. CELLCEPT [Suspect]

REACTIONS (3)
  - ANGIOPATHY [None]
  - COMPLICATIONS OF TRANSPLANT SURGERY [None]
  - PLEURAL EFFUSION [None]
